FAERS Safety Report 5520743-6 (Version None)
Quarter: 2007Q4

REPORT INFORMATION
  Report Type: 
  Country: None (occurrence: None)
  Receive Date: 20071119
  Receipt Date: 20071106
  Transmission Date: 20080405
  Serious: Yes (Other)
  Sender: FDA-Public Use
  Company Number: US-PFIZER INC-2007094476

PATIENT
  Sex: Male
  Weight: 95.3 kg

DRUGS (6)
  1. CHANTIX [Suspect]
     Indication: SMOKING CESSATION THERAPY
  2. IBUPROFEN TABLETS [Concomitant]
  3. ACETYLSALICYLIC ACID SRT [Concomitant]
  4. CHOLESTEROL [Concomitant]
     Indication: BLOOD CHOLESTEROL INCREASED
  5. TRIGLYCERIDES [Concomitant]
     Indication: BLOOD TRIGLYCERIDES
  6. ANTIHYPERTENSIVES [Concomitant]
     Indication: HYPERTENSION

REACTIONS (6)
  - ASTHENIA [None]
  - DEPRESSION [None]
  - INSOMNIA [None]
  - PNEUMONIA [None]
  - STOMACH DISCOMFORT [None]
  - TUBERCULOSIS [None]
